FAERS Safety Report 14071331 (Version 1)
Quarter: 2017Q4

REPORT INFORMATION
  Report Type: Spontaneous
  Country: US (occurrence: US)
  Receive Date: 20171010
  Receipt Date: 20171010
  Transmission Date: 20180321
  Serious: No
  Sender: FDA-Public Use
  Company Number: US-JNJFOC-20170718792

PATIENT
  Age: 85 Year
  Sex: Female
  Weight: 65 kg

DRUGS (4)
  1. OXYBUTYNIN. [Concomitant]
     Active Substance: OXYBUTYNIN CHLORIDE
  2. IMBRUVICA [Suspect]
     Active Substance: IBRUTINIB
     Indication: DIFFUSE LARGE B-CELL LYMPHOMA
     Route: 048
     Dates: start: 201707
  3. ALLOPURINOL. [Concomitant]
     Active Substance: ALLOPURINOL
  4. IMBRUVICA [Suspect]
     Active Substance: IBRUTINIB
     Indication: DIFFUSE LARGE B-CELL LYMPHOMA
     Route: 048
     Dates: start: 20170619, end: 201707

REACTIONS (4)
  - Product use in unapproved indication [Unknown]
  - Balance disorder [Unknown]
  - Dizziness [Unknown]
  - Off label use [Unknown]

NARRATIVE: CASE EVENT DATE: 20170619
